FAERS Safety Report 25904867 (Version 1)
Quarter: 2025Q4

REPORT INFORMATION
  Report Type: Spontaneous
  Country: AU (occurrence: AU)
  Receive Date: 20251010
  Receipt Date: 20251010
  Transmission Date: 20260118
  Serious: Yes (Other)
  Sender: ORGANON
  Company Number: None

PATIENT
  Age: 48 Year
  Sex: Female

DRUGS (12)
  1. MONTELUKAST SODIUM [Suspect]
     Active Substance: MONTELUKAST SODIUM
     Indication: Angioedema
     Dosage: UNK
     Route: 065
  2. MONTELUKAST SODIUM [Suspect]
     Active Substance: MONTELUKAST SODIUM
     Indication: Solar urticaria
  3. MONTELUKAST SODIUM [Suspect]
     Active Substance: MONTELUKAST SODIUM
     Indication: Urticaria pressure
  4. KETOTIFEN [Suspect]
     Active Substance: KETOTIFEN
     Indication: Angioedema
     Dosage: UNK
     Route: 065
  5. KETOTIFEN [Suspect]
     Active Substance: KETOTIFEN
     Indication: Solar urticaria
  6. KETOTIFEN [Suspect]
     Active Substance: KETOTIFEN
     Indication: Urticaria pressure
  7. XOLAIR [Suspect]
     Active Substance: OMALIZUMAB
     Indication: Solar urticaria
     Dosage: 300 MILLIGRAM, EVERY 4 WEEKS
     Route: 065
     Dates: start: 202008
  8. XOLAIR [Suspect]
     Active Substance: OMALIZUMAB
     Indication: Urticaria pressure
     Dosage: 300 MILLIGRAM, EVERY 4 WEEKS
     Route: 065
     Dates: start: 20200525
  9. XOLAIR [Suspect]
     Active Substance: OMALIZUMAB
     Indication: Angioedema
     Dosage: 300 MILLIGRAM, EVERY 4 WEEKS
     Route: 065
     Dates: start: 20211206
  10. XOLAIR [Suspect]
     Active Substance: OMALIZUMAB
     Dosage: UNK
  11. XOLAIR [Suspect]
     Active Substance: OMALIZUMAB
     Dosage: 300 MILLIGRAM, EVERY 4 WEEKS
  12. XOLAIR [Suspect]
     Active Substance: OMALIZUMAB
     Dosage: 300 MILLIGRAM, QM

REACTIONS (10)
  - Angioedema [Unknown]
  - Blood pressure abnormal [Unknown]
  - Drug ineffective [Unknown]
  - Erythema [Unknown]
  - Photosensitivity reaction [Unknown]
  - Pruritus [Unknown]
  - Solar urticaria [Unknown]
  - Therapeutic response shortened [Unknown]
  - Urticaria [Unknown]
  - Product use in unapproved indication [Unknown]
